FAERS Safety Report 7906089-7 (Version None)
Quarter: 2011Q4

REPORT INFORMATION
  Report Type: 
  Country: None (occurrence: None)
  Receive Date: 20111110
  Receipt Date: 20111031
  Transmission Date: 20120403
  Serious: Yes (Life-Threatening, Other)
  Sender: FDA-Public Use
  Company Number: JP-BRISTOL-MYERS SQUIBB COMPANY-15923519

PATIENT
  Age: 86 Year
  Sex: Female
  Weight: 36 kg

DRUGS (1)
  1. MAXIPIME [Suspect]
     Indication: CHOLECYSTITIS
     Route: 041
     Dates: start: 20110722, end: 20110725

REACTIONS (2)
  - DYSKINESIA [None]
  - ALTERED STATE OF CONSCIOUSNESS [None]
